FAERS Safety Report 9903317 (Version 1)
Quarter: 2014Q1

REPORT INFORMATION
  Report Type: Spontaneous
  Country: US (occurrence: US)
  Receive Date: 20140217
  Receipt Date: 20140217
  Transmission Date: 20141002
  Serious: No
  Sender: FDA-Public Use
  Company Number: US-ASTRAZENECA-2013SE51461

PATIENT
  Age: 79 Year
  Sex: Male
  Weight: 95.3 kg

DRUGS (10)
  1. ATENOLOL [Suspect]
     Indication: BLOOD PRESSURE ABNORMAL
     Route: 048
  2. NEXIUM [Suspect]
     Indication: DYSPEPSIA
     Route: 048
     Dates: start: 201307
  3. NEXIUM [Suspect]
     Indication: GASTRITIS
     Route: 048
     Dates: start: 201307
  4. METFORMIN [Concomitant]
     Indication: DIABETES MELLITUS
  5. TRIAMTERENE HCTZ [Concomitant]
     Indication: BLOOD PRESSURE ABNORMAL
  6. SYMVASTATIN [Concomitant]
     Indication: BLOOD CHOLESTEROL ABNORMAL
     Dosage: 10MG
  7. ASPIRIN [Concomitant]
     Dosage: 81MG
  8. MIRILAX [Concomitant]
  9. MILK OF MAGNESIA [Concomitant]
  10. SENNA [Concomitant]

REACTIONS (5)
  - Chest discomfort [Unknown]
  - Flatulence [Unknown]
  - Abdominal discomfort [Unknown]
  - Constipation [Unknown]
  - Off label use [Unknown]
